APPROVED DRUG PRODUCT: FLUPHENAZINE HYDROCHLORIDE
Active Ingredient: FLUPHENAZINE HYDROCHLORIDE
Strength: 2.5MG
Dosage Form/Route: TABLET;ORAL
Application: A218283 | Product #002 | TE Code: AB
Applicant: RISING PHARMA HOLDINGS INC
Approved: Jun 7, 2024 | RLD: No | RS: No | Type: RX